FAERS Safety Report 5068321-X (Version None)
Quarter: 2006Q3

REPORT INFORMATION
  Report Type: 
  Country: None (occurrence: None)
  Receive Date: 20060802
  Receipt Date: 20050801
  Transmission Date: 20061208
  Serious: No
  Sender: FDA-Public Use
  Company Number: US-BRISTOL-MYERS SQUIBB COMPANY-13058599

PATIENT
  Age: 74 Year
  Sex: Female
  Weight: 80 kg

DRUGS (9)
  1. COUMADIN [Suspect]
     Indication: ATRIAL FIBRILLATION
     Dates: start: 19980201
  2. AEROBID [Concomitant]
  3. RHINOCORT [Concomitant]
  4. PREVACID [Concomitant]
  5. VASOTEC [Concomitant]
  6. VERAPAMIL [Concomitant]
  7. FOSAMAX [Concomitant]
  8. XANAX [Concomitant]
  9. ACETAMINOPHEN [Concomitant]

REACTIONS (1)
  - INTERNATIONAL NORMALISED RATIO FLUCTUATION [None]
